FAERS Safety Report 6856542-2 (Version None)
Quarter: 2010Q3

REPORT INFORMATION
  Report Type: 
  Country: None (occurrence: None)
  Receive Date: 20100716
  Receipt Date: 20100716
  Transmission Date: 20110219
  Serious: Yes (Life-Threatening, Hospitalization)
  Sender: FDA-Public Use
  Company Number: None

PATIENT
  Age: 49 Year
  Sex: Male
  Weight: 106 kg

DRUGS (2)
  1. GADOBENATE DIMEGLUMINE 529 MG/ML BRACCO DIAGNOSTICS INC [Suspect]
     Indication: NUCLEAR MAGNETIC RESONANCE IMAGING
     Dates: start: 20100512, end: 20100512
  2. GADOBENATE DIMEGLUMINE 529 MG/ML BRACCO DIAGNOSTICS INC [Suspect]
     Indication: SCAN WITH CONTRAST
     Dates: start: 20100512, end: 20100512

REACTIONS (2)
  - CONTRAST MEDIA ALLERGY [None]
  - LOSS OF CONSCIOUSNESS [None]
